FAERS Safety Report 4688634-0 (Version None)
Quarter: 2005Q2

REPORT INFORMATION
  Report Type: 
  Country: None (occurrence: None)
  Receive Date: 20050608
  Receipt Date: 20050201
  Transmission Date: 20051028
  Serious: No
  Sender: FDA-Public Use
  Company Number: 2005-BP-00622BP

PATIENT
  Age: 73 Year
  Sex: Male

DRUGS (3)
  1. SPIRIVA [Suspect]
     Indication: CHRONIC OBSTRUCTIVE PULMONARY DISEASE
     Dosage: (18 MCG), IH
     Route: 055
  2. ALBUTEROL [Concomitant]
  3. PULMICORT [Concomitant]

REACTIONS (1)
  - URINARY RETENTION [None]
